FAERS Safety Report 4724822-2 (Version None)
Quarter: 2005Q3

REPORT INFORMATION
  Report Type: 
  Country: None (occurrence: None)
  Receive Date: 20050720
  Receipt Date: 20050720
  Transmission Date: 20060218
  Serious: Yes (Hospitalization)
  Sender: FDA-Public Use
  Company Number: None

PATIENT
  Age: 54 Year
  Sex: Male

DRUGS (10)
  1. TRIAMTERENE AND HYDROCHLOROTHIAZIDE [Suspect]
     Dosage: 50/75 PO   QD
     Route: 048
     Dates: start: 20040604, end: 20050401
  2. FELODIPINE [Suspect]
     Dosage: 10MG  PO   QD
     Route: 048
     Dates: start: 20040828, end: 20050719
  3. CITALOPRAM HYDROBROMIDE [Concomitant]
  4. CODEINE SO4 [Concomitant]
  5. INSULIN NOVOLIN 70/30 -NPH/REG- [Concomitant]
  6. LISINOPRIL [Concomitant]
  7. LORAZEPAM [Concomitant]
  8. METOCLOPRAMIDE HCL [Concomitant]
  9. METRONIDAZOLE [Concomitant]
  10. TETRACYCLINE [Concomitant]

REACTIONS (1)
  - HYPERKALAEMIA [None]
